FAERS Safety Report 5520253-6 (Version None)
Quarter: 2007Q4

REPORT INFORMATION
  Report Type: 
  Country: None (occurrence: None)
  Receive Date: 20071117
  Receipt Date: 20071112
  Transmission Date: 20080405
  Serious: Yes (Hospitalization)
  Sender: FDA-Public Use
  Company Number: PHNU2007DE02621

PATIENT
  Age: 42 Year
  Sex: Female

DRUGS (1)
  1. AREDIA [Suspect]
     Indication: OSTEOPOROSIS PROPHYLAXIS
     Dosage: 30 MG, UNK
     Route: 042
     Dates: start: 20070406

REACTIONS (7)
  - BLOOD PRESSURE DECREASED [None]
  - DIZZINESS [None]
  - DYSPNOEA [None]
  - LUNG DISORDER [None]
  - MUSCULOSKELETAL CHEST PAIN [None]
  - PLEURISY [None]
  - SLEEP DISORDER [None]
